FAERS Safety Report 10370319 (Version 4)
Quarter: 2015Q3

REPORT INFORMATION
  Report Type: Spontaneous
  Country: US (occurrence: US)
  Receive Date: 20140808
  Receipt Date: 20150728
  Transmission Date: 20151125
  Serious: Yes (Life-Threatening, Hospitalization, Congenital Anomaly, Other)
  Sender: FDA-Public Use
  Company Number: US-ELI_LILLY_AND_COMPANY-US201407011965

PATIENT
  Age: 17 Day
  Sex: Female

DRUGS (7)
  1. PROZAC [Suspect]
     Active Substance: FLUOXETINE HYDROCHLORIDE
     Indication: DEPRESSION
     Dosage: UNK, UNKNOWN
     Route: 064
  2. PROZAC [Suspect]
     Active Substance: FLUOXETINE HYDROCHLORIDE
     Indication: NERVOUSNESS
  3. EFFEXOR [Concomitant]
     Active Substance: VENLAFAXINE HYDROCHLORIDE
     Indication: PRODUCT USED FOR UNKNOWN INDICATION
     Dosage: UNK, UNKNOWN
     Route: 064
  4. FERROUS SULFATE [Concomitant]
     Active Substance: FERROUS SULFATE\FERROUS SULFATE, DRIED
     Route: 064
  5. COLACE [Concomitant]
     Active Substance: DOCUSATE SODIUM
     Route: 064
  6. PROZAC [Suspect]
     Active Substance: FLUOXETINE HYDROCHLORIDE
     Indication: HEADACHE
  7. PRENATAL                           /00231801/ [Concomitant]
     Dosage: 1 DF, UNK
     Route: 064

REACTIONS (16)
  - Endocarditis bacterial [Recovered/Resolved]
  - Atrial septal defect [Unknown]
  - Apgar score low [Recovered/Resolved]
  - Cardiomegaly [Unknown]
  - Tricuspid valve incompetence [Unknown]
  - Congenital pulmonary valve disorder [Unknown]
  - Patent ductus arteriosus [Unknown]
  - Congenital aortic stenosis [Unknown]
  - Atelectasis neonatal [Unknown]
  - Cardiac failure congestive [Unknown]
  - Neonatal respiratory distress syndrome [Unknown]
  - Pulmonary artery stenosis congenital [Unknown]
  - Aortic valve incompetence [Unknown]
  - Pulmonary oedema neonatal [Unknown]
  - Foetal exposure during pregnancy [Recovered/Resolved]
  - Exposure during breast feeding [Unknown]

NARRATIVE: CASE EVENT DATE: 20060925
